FAERS Safety Report 17116467 (Version 3)
Quarter: 2020Q1

REPORT INFORMATION
  Report Type: Report from Study
  Country: ES (occurrence: ES)
  Receive Date: 20191205
  Receipt Date: 20200213
  Transmission Date: 20200409
  Serious: Yes (Hospitalization)
  Sender: FDA-Public Use
  Company Number: ES-CELGENEUS-ESP-20191110245

PATIENT
  Age: 71 Year
  Sex: Male
  Weight: 92 kg

DRUGS (10)
  1. DEXAMETHASONE. [Suspect]
     Active Substance: DEXAMETHASONE
     Indication: PLASMA CELL MYELOMA
     Route: 048
     Dates: start: 20190218, end: 20191125
  2. PAROXETINE. [Concomitant]
     Active Substance: PAROXETINE
     Indication: ANXIETY
     Dosage: 20 MILLIGRAM
     Route: 048
     Dates: start: 20190916
  3. CARFILZOMIB [Suspect]
     Active Substance: CARFILZOMIB
     Route: 041
     Dates: start: 20191202, end: 20191210
  4. ROSUVASTATIN. [Concomitant]
     Active Substance: ROSUVASTATIN
     Indication: DYSLIPIDAEMIA
     Dosage: 5 MILLIGRAM
     Route: 048
     Dates: start: 20191119, end: 20191125
  5. LENALIDOMIDE [Suspect]
     Active Substance: LENALIDOMIDE
     Route: 048
     Dates: start: 20191202, end: 20191215
  6. ENOXAPARIN BIOSIMILAR [Concomitant]
     Indication: THROMBOSIS PROPHYLAXIS
     Dosage: 200 MILLIGRAM
     Route: 048
     Dates: start: 20191106
  7. IRBESARTAN/HYDROCHLOROTHIAZIDE [Concomitant]
     Active Substance: HYDROCHLOROTHIAZIDE\IRBESARTAN
     Indication: HYPERTENSION
     Dosage: 300/125 MG
     Route: 048
     Dates: start: 20190916, end: 20191125
  8. ALLOPURINOL. [Concomitant]
     Active Substance: ALLOPURINOL
     Indication: HYPERURICAEMIA
     Dosage: 300 MILLIGRAM
     Route: 048
     Dates: start: 20190916
  9. LENALIDOMIDE [Suspect]
     Active Substance: LENALIDOMIDE
     Indication: PLASMA CELL MYELOMA
     Route: 048
     Dates: start: 20190218, end: 20191028
  10. CARFILZOMIB [Suspect]
     Active Substance: CARFILZOMIB
     Indication: PLASMA CELL MYELOMA
     Route: 041
     Dates: start: 20190218, end: 20191125

REACTIONS (2)
  - Gastrointestinal disorder [Recovered/Resolved]
  - Tooth disorder [Recovered/Resolved]

NARRATIVE: CASE EVENT DATE: 20191126
